FAERS Safety Report 11753806 (Version 1)
Quarter: 2015Q4

REPORT INFORMATION
  Report Type: Spontaneous
  Country: US (occurrence: None)
  Receive Date: 20151118
  Receipt Date: 20151118
  Transmission Date: 20160304
  Serious: Yes (Hospitalization)
  Sender: FDA-Public Use
  Company Number: None

PATIENT
  Age: 66 Year
  Sex: Male
  Weight: 97.7 kg

DRUGS (2)
  1. WARFARIN [Suspect]
     Active Substance: WARFARIN
     Indication: ATRIAL FIBRILLATION
     Dates: start: 20040301, end: 20150902
  2. CLOPIDOGREL [Suspect]
     Active Substance: CLOPIDOGREL BISULFATE
     Indication: CORONARY ARTERIAL STENT INSERTION
     Route: 048
     Dates: start: 20130330, end: 20150902

REACTIONS (7)
  - Gastric haemorrhage [None]
  - Chest pain [None]
  - Melaena [None]
  - Dizziness [None]
  - Haemoglobin decreased [None]
  - Adenocarcinoma [None]
  - International normalised ratio increased [None]

NARRATIVE: CASE EVENT DATE: 20150902
